FAERS Safety Report 4898417-4 (Version None)
Quarter: 2006Q1

REPORT INFORMATION
  Report Type: 
  Country: None (occurrence: None)
  Receive Date: 20060131
  Receipt Date: 20060131
  Transmission Date: 20060701
  Serious: Yes (Other)
  Sender: FDA-Public Use
  Company Number: None

PATIENT
  Sex: Female
  Weight: 72.5755 kg

DRUGS (3)
  1. PROTONIX IV [Suspect]
     Indication: ABDOMINAL PAIN
     Dosage: 40 MG DAILY IV BOLUS
     Route: 042
     Dates: start: 20051206, end: 20051216
  2. PROTONIX IV [Suspect]
     Indication: GASTRITIS
     Dosage: 40 MG DAILY IV BOLUS
     Route: 042
     Dates: start: 20051206, end: 20051216
  3. IBUPROFEN [Concomitant]

REACTIONS (1)
  - PANCREATITIS [None]
